FAERS Safety Report 6730124-5 (Version None)
Quarter: 2010Q2

REPORT INFORMATION
  Report Type: 
  Country: None (occurrence: None)
  Receive Date: 20100513
  Receipt Date: 20100427
  Transmission Date: 20101027
  Serious: Yes (Other)
  Sender: FDA-Public Use
  Company Number: 2010S1002706

PATIENT
  Age: 70 Year
  Sex: Male

DRUGS (4)
  1. PHOSPHOSODA FLAVOR NOT SPECIFIED [Suspect]
     Indication: COLECTOMY
     Dosage: PO; PO
     Route: 048
     Dates: start: 20050801, end: 20050801
  2. PHOSPHOSODA FLAVOR NOT SPECIFIED [Suspect]
     Indication: COLONOSCOPY
     Dosage: PO; PO
     Route: 048
     Dates: start: 20050801, end: 20050801
  3. PHOSPHOSODA FLAVOR NOT SPECIFIED [Suspect]
     Indication: COLECTOMY
     Dosage: PO; PO
     Route: 048
     Dates: start: 20050814, end: 20050814
  4. PHOSPHOSODA FLAVOR NOT SPECIFIED [Suspect]
     Indication: COLONOSCOPY
     Dosage: PO; PO
     Route: 048
     Dates: start: 20050814, end: 20050814

REACTIONS (1)
  - RENAL IMPAIRMENT [None]
